FAERS Safety Report 5369059-1 (Version None)
Quarter: 2007Q2

REPORT INFORMATION
  Report Type: 
  Country: None (occurrence: None)
  Receive Date: 20070625
  Receipt Date: 20070130
  Transmission Date: 20071010
  Serious: No
  Sender: FDA-Public Use
  Company Number: US-ASTRAZENECA-2007UW01820

PATIENT
  Age: 59 Year
  Sex: Female

DRUGS (7)
  1. CRESTOR [Suspect]
     Indication: HYPERCHOLESTEROLAEMIA
  2. ZETIA [Suspect]
     Indication: HYPERCHOLESTEROLAEMIA
     Dates: start: 20070101
  3. LOPID [Suspect]
     Indication: HYPERCHOLESTEROLAEMIA
     Route: 048
     Dates: start: 20070113
  4. FORTICAL [Suspect]
     Indication: OSTEOPOROSIS
     Route: 045
     Dates: start: 20070113
  5. CALCIUM CHLORIDE [Concomitant]
  6. VITAMIN B-12 [Concomitant]
  7. NERVE MEDICATIONS [Concomitant]

REACTIONS (5)
  - CHOKING SENSATION [None]
  - GAIT DISTURBANCE [None]
  - MUSCLE SPASMS [None]
  - RASH [None]
  - SKIN ULCER [None]
